FAERS Safety Report 5128076-7 (Version None)
Quarter: 2006Q4

REPORT INFORMATION
  Report Type: 
  Country: None (occurrence: None)
  Receive Date: 20061010
  Receipt Date: 20060904
  Transmission Date: 20070319
  Serious: Yes (Disabling)
  Sender: FDA-Public Use
  Company Number: 2006-146876-NL

PATIENT
  Age: 47 Year
  Sex: Female

DRUGS (2)
  1. MIRTAZAPINE [Suspect]
  2. DIAZEPAM [Concomitant]

REACTIONS (8)
  - ABASIA [None]
  - ARTHRALGIA [None]
  - ASTHENIA [None]
  - BURNING SENSATION [None]
  - MOBILITY DECREASED [None]
  - MYALGIA [None]
  - PAIN IN EXTREMITY [None]
  - TREMOR [None]
